FAERS Safety Report 7623189-X (Version None)
Quarter: 2011Q3

REPORT INFORMATION
  Report Type: 
  Country: None (occurrence: None)
  Receive Date: 20110720
  Receipt Date: 20110705
  Transmission Date: 20111222
  Serious: Yes (Other)
  Sender: FDA-Public Use
  Company Number: ZA-SANOFI-AVENTIS-2011SA044358

PATIENT
  Age: 75 Year
  Sex: Female
  Weight: 109 kg

DRUGS (6)
  1. WARFARIN SODIUM [Concomitant]
  2. DRONEDARONE HCL [Suspect]
     Indication: ATRIAL FIBRILLATION
     Route: 048
     Dates: start: 20110506
  3. LOSARTAN [Concomitant]
  4. ASPIRIN [Concomitant]
  5. FUROSEMIDE [Concomitant]
  6. GLUCOPHAGE [Concomitant]

REACTIONS (1)
  - CARDIAC FAILURE [None]
